FAERS Safety Report 8476082-7 (Version None)
Quarter: 2012Q2

REPORT INFORMATION
  Report Type: 
  Country: None (occurrence: None)
  Receive Date: 20120628
  Receipt Date: 20120615
  Transmission Date: 20120825
  Serious: Yes (Hospitalization)
  Sender: FDA-Public Use
  Company Number: US-ELI_LILLY_AND_COMPANY-US201206006100

PATIENT
  Age: 61 Year
  Sex: Female

DRUGS (3)
  1. CYMBALTA [Suspect]
     Indication: DEPRESSION
     Dosage: UNK, UNKNOWN
     Route: 065
  2. CYMBALTA [Suspect]
     Dosage: 30 MG, QD
     Route: 065
  3. CYMBALTA [Suspect]
     Dosage: 60 MG, QD
     Route: 065

REACTIONS (8)
  - HOSPITALISATION [None]
  - PNEUMONIA [None]
  - GAIT DISTURBANCE [None]
  - BALANCE DISORDER [None]
  - PULMONARY OEDEMA [None]
  - BONE DENSITY DECREASED [None]
  - DRUG INEFFECTIVE [None]
  - FEELING ABNORMAL [None]
